FAERS Safety Report 26196529 (Version 1)
Quarter: 2025Q4

REPORT INFORMATION
  Report Type: Spontaneous
  Country: EU (occurrence: EU)
  Receive Date: 20251224
  Receipt Date: 20251224
  Transmission Date: 20260117
  Serious: Yes (Other)
  Sender: DAITO PHARMACEUTICALS
  Company Number: EU-Daito Pharmaceutical Co., Ltd.-2190553

PATIENT
  Age: 76 Year
  Sex: Male

DRUGS (4)
  1. METHOTREXATE SODIUM [Suspect]
     Active Substance: METHOTREXATE SODIUM
     Indication: Ocular lymphoma
  2. RITUXIMAB [Concomitant]
     Active Substance: RITUXIMAB
  3. VINCRISTINE [Concomitant]
     Active Substance: VINCRISTINE
  4. PROCARBAZINE [Concomitant]
     Active Substance: PROCARBAZINE

REACTIONS (2)
  - Cystoid macular oedema [Recovered/Resolved]
  - Incorrect route of product administration [Unknown]
